FAERS Safety Report 11181401 (Version 1)
Quarter: 2015Q2

REPORT INFORMATION
  Report Type: Spontaneous
  Country: US (occurrence: US)
  Receive Date: 20150611
  Receipt Date: 20150611
  Transmission Date: 20150821
  Serious: No
  Sender: FDA-Public Use
  Company Number: US-PFIZER INC-2015191274

PATIENT
  Age: 55 Year
  Sex: Male

DRUGS (7)
  1. LOPID [Suspect]
     Active Substance: GEMFIBROZIL
     Dosage: 500 MG, 2X/DAY
     Route: 048
     Dates: start: 20150202
  2. LOPID [Suspect]
     Active Substance: GEMFIBROZIL
     Dosage: 600 MG, 2X/DAY
     Route: 048
     Dates: start: 20150520
  3. ULTRAM [Concomitant]
     Active Substance: TRAMADOL HYDROCHLORIDE
     Dosage: 50 MG, 2X/DAY EVERY 12 HRS AS NEEDED
     Route: 048
     Dates: start: 20140115
  4. ZESTORETIC [Concomitant]
     Active Substance: HYDROCHLOROTHIAZIDE\LISINOPRIL
     Dosage: 1 DF, 1X/DAY
     Route: 048
     Dates: start: 20150520
  5. LYRICA [Suspect]
     Active Substance: PREGABALIN
     Dosage: 75 MG, 3X/DAY
     Route: 048
     Dates: start: 20150520
  6. ALLOPURINOL. [Concomitant]
     Active Substance: ALLOPURINOL
     Dosage: 100 MG, 1X/DAY
     Route: 048
     Dates: start: 20150520
  7. ATENOLOL. [Concomitant]
     Active Substance: ATENOLOL
     Dosage: 25 MG, 1X/DAY
     Route: 048

REACTIONS (5)
  - Sciatica [Unknown]
  - Hyperlipidaemia [Unknown]
  - Gout [Unknown]
  - Varicose vein [Unknown]
  - Hypertension [Unknown]
